FAERS Safety Report 6961680-X (Version None)
Quarter: 2010Q3

REPORT INFORMATION
  Report Type: 
  Country: None (occurrence: None)
  Receive Date: 20100901
  Receipt Date: 20100825
  Transmission Date: 20110219
  Serious: Yes (Hospitalization, Other)
  Sender: FDA-Public Use
  Company Number: US-AMGEN-QUU420559

PATIENT
  Sex: Female
  Weight: 124.4 kg

DRUGS (8)
  1. NPLATE [Suspect]
     Indication: IDIOPATHIC THROMBOCYTOPENIC PURPURA
     Dates: start: 20081219, end: 20100615
  2. OMEPRAZOLE [Concomitant]
     Dates: start: 20100618
  3. CORTICOSTEROIDS [Concomitant]
     Dates: start: 20080819
  4. CELEXA [Concomitant]
     Dates: start: 20100304
  5. ZOFRAN [Concomitant]
     Dates: start: 20100223
  6. COMPAZINE [Concomitant]
     Dates: start: 20100618
  7. ALOXI [Concomitant]
  8. TOPOTECAN [Concomitant]

REACTIONS (6)
  - ACTIVATED PARTIAL THROMBOPLASTIN TIME PROLONGED [None]
  - ANAEMIA [None]
  - GASTROENTERITIS RADIATION [None]
  - LOWER GASTROINTESTINAL HAEMORRHAGE [None]
  - METASTASES TO LUNG [None]
  - PULMONARY EMBOLISM [None]
